FAERS Safety Report 7023239-8 (Version None)
Quarter: 2010Q3

REPORT INFORMATION
  Report Type: 
  Country: None (occurrence: None)
  Receive Date: 20100930
  Receipt Date: 20100920
  Transmission Date: 20110219
  Serious: Yes (Other)
  Sender: FDA-Public Use
  Company Number: GB-MYLANLABS-2010S1010610

PATIENT
  Age: 12 Year
  Sex: Male

DRUGS (10)
  1. CYSTAGON [Suspect]
     Indication: CYSTINOSIS
     Route: 048
     Dates: start: 19990101
  2. CYSTAGON [Suspect]
     Route: 048
  3. NEORECORMON [Concomitant]
     Dates: start: 20070101
  4. FERROUS SULFATE TAB [Concomitant]
     Dates: start: 20050101
  5. MULTI-VITAMINS [Concomitant]
     Dates: start: 20080101
  6. ALFACALCIDOL [Concomitant]
     Dates: start: 20050101
  7. GENOTROPIN [Concomitant]
     Dates: start: 20070101
  8. POTASSIUM CITRATE [Concomitant]
     Dates: start: 20060101
  9. LATANOPROST [Concomitant]
     Dates: start: 20080101
  10. BETAXOLOL [Concomitant]
     Dates: start: 20080101

REACTIONS (3)
  - LABORATORY TEST INTERFERENCE [None]
  - LEUKOPENIA [None]
  - NEUTROPENIA [None]
